FAERS Safety Report 10068897 (Version 4)
Quarter: 2015Q2

REPORT INFORMATION
  Report Type: Spontaneous
  Country: US (occurrence: US)
  Receive Date: 20140409
  Receipt Date: 20150416
  Transmission Date: 20150821
  Serious: Yes (Disabling, Other)
  Sender: FDA-Public Use
  Company Number: US-009507513-1404USA001786

PATIENT
  Sex: Male

DRUGS (3)
  1. PROPECIA [Suspect]
     Active Substance: FINASTERIDE
     Indication: ANDROGENETIC ALOPECIA
     Dosage: 1 MG, UNK
     Route: 048
     Dates: start: 1999, end: 2014
  2. FINASTERIDE. [Suspect]
     Active Substance: FINASTERIDE
     Indication: ALOPECIA
     Dosage: 5 MG BROKEN INTO 1/5
     Route: 048
  3. FINASTERIDE. [Suspect]
     Active Substance: FINASTERIDE
     Dosage: 5 MG, QD
     Route: 048

REACTIONS (16)
  - Orgasm abnormal [Not Recovered/Not Resolved]
  - Ejaculation disorder [Not Recovered/Not Resolved]
  - Paraesthesia [Unknown]
  - Libido decreased [Not Recovered/Not Resolved]
  - Erectile dysfunction [Not Recovered/Not Resolved]
  - Hyperlipidaemia [Unknown]
  - Wrong technique in drug usage process [Unknown]
  - Vision blurred [Unknown]
  - Hypoaesthesia [Unknown]
  - Anxiety [Not Recovered/Not Resolved]
  - Depression [Not Recovered/Not Resolved]
  - Neuropathy peripheral [Unknown]
  - Colon cancer stage II [Unknown]
  - Insomnia [Not Recovered/Not Resolved]
  - Hypoaesthesia [Recovered/Resolved]
  - Hypothyroidism [Unknown]

NARRATIVE: CASE EVENT DATE: 2001
